FAERS Safety Report 4403596-9 (Version None)
Quarter: 2004Q3

REPORT INFORMATION
  Report Type: 
  Country: None (occurrence: None)
  Receive Date: 20040721
  Receipt Date: 20040712
  Transmission Date: 20050211
  Serious: Yes (Hospitalization)
  Sender: FDA-Public Use
  Company Number: IT-GLAXOSMITHKLINE-B0339446A

PATIENT
  Age: 50 Year
  Sex: Male

DRUGS (1)
  1. AMOXYCILLIN/CLAVULANIC ACID [Suspect]
     Indication: ARTHROPOD BITE
     Dosage: 2G PER DAY
     Dates: start: 20040705, end: 20040706

REACTIONS (2)
  - DERMATITIS [None]
  - URTICARIA [None]
